FAERS Safety Report 9319638 (Version 6)
Quarter: 2014Q1

REPORT INFORMATION
  Report Type: Spontaneous
  Country: US (occurrence: US)
  Receive Date: 20130530
  Receipt Date: 20140131
  Transmission Date: 20141002
  Serious: Yes (Hospitalization)
  Sender: FDA-Public Use
  Company Number: US-GLAXOSMITHKLINE-A1017311A

PATIENT
  Age: 44 Year
  Sex: Female

DRUGS (5)
  1. FLOLAN [Suspect]
     Indication: PULMONARY ARTERIAL HYPERTENSION
     Dosage: 22.4NGKM CONTINUOUS
     Route: 042
     Dates: start: 20021111
  2. CHLORAPREP [Suspect]
     Indication: PRODUCT USED FOR UNKNOWN INDICATION
  3. LETAIRIS [Concomitant]
  4. REVATIO [Concomitant]
  5. COUMADIN [Concomitant]

REACTIONS (7)
  - Device related infection [Unknown]
  - Central venous catheterisation [Recovered/Resolved]
  - Dyspnoea [Unknown]
  - Sinusitis [Unknown]
  - Therapeutic procedure [Recovered/Resolved]
  - Catheter site infection [Unknown]
  - Catheter site pain [Not Recovered/Not Resolved]
